FAERS Safety Report 6918208-X (Version None)
Quarter: 2010Q3

REPORT INFORMATION
  Report Type: 
  Country: None (occurrence: None)
  Receive Date: 20100806
  Receipt Date: 20100722
  Transmission Date: 20110219
  Serious: Yes (Other)
  Sender: FDA-Public Use
  Company Number: AUR-APL-2010-01604

PATIENT
  Age: 67 Year
  Sex: Male

DRUGS (3)
  1. SULFAMETHOXAZOLE AND TRIMETHOPRIM [Suspect]
  2. VFEND [Suspect]
     Indication: PSEUDALLESCHERIA INFECTION
     Dosage: 300 MG, BID, ORAL
     Route: 048
     Dates: start: 20091120, end: 20100408
  3. DIOVAN [Concomitant]

REACTIONS (10)
  - ASTHENIA [None]
  - DEPRESSION [None]
  - ERYTHEMA [None]
  - FATIGUE [None]
  - FEELING ABNORMAL [None]
  - FLAT AFFECT [None]
  - MALAISE [None]
  - SCLERODERMA [None]
  - SKIN INFECTION [None]
  - SUNBURN [None]
